FAERS Safety Report 7954757-3 (Version None)
Quarter: 2011Q4

REPORT INFORMATION
  Report Type: 
  Country: None (occurrence: None)
  Receive Date: 20111202
  Receipt Date: 20111118
  Transmission Date: 20120403
  Serious: Yes (Other)
  Sender: FDA-Public Use
  Company Number: DK-ROCHE-1008741

PATIENT
  Sex: Female

DRUGS (2)
  1. LUCENTIS [Suspect]
     Indication: DIABETIC RETINAL OEDEMA
     Route: 050
     Dates: start: 20110101
  2. LUCENTIS [Suspect]
     Route: 050
     Dates: start: 20111019

REACTIONS (4)
  - CONJUNCTIVITIS [None]
  - EYE OEDEMA [None]
  - SCLERAL DISORDER [None]
  - INJECTION SITE ABSCESS [None]
